FAERS Safety Report 7630112-0 (Version None)
Quarter: 2011Q3

REPORT INFORMATION
  Report Type: 
  Country: None (occurrence: None)
  Receive Date: 20110715
  Receipt Date: 20110706
  Transmission Date: 20111222
  Serious: Yes (Other)
  Sender: FDA-Public Use
  Company Number: GB-ACCORD-009662

PATIENT
  Age: 47 Year
  Sex: Male
  Weight: 113 kg

DRUGS (15)
  1. WARFARIN SODIUM [Suspect]
     Indication: EMBOLISM VENOUS
     Dosage: 12.50-MG-
  2. LOPERAMIDE [Suspect]
     Indication: PRODUCT USED FOR UNKNOWN INDICATION
  3. DARBEPOBTIN ALFA(DARBEPOETIN ALFA) [Suspect]
     Indication: PRODUCT USED FOR UNKNOWN INDICATION
     Dosage: SUBCUTANEOUS
     Route: 058
  4. GRANISETRON [Suspect]
     Indication: PRODUCT USED FOR UNKNOWN INDICATION
     Dosage: 1.00-MG-/ INTRAVENOUS (NOT OTHERWISE SPECIFIED)
     Route: 042
  5. CARBOPLATIN [Suspect]
     Indication: PRODUCT USED FOR UNKNOWN INDICATION
     Dosage: 285.00-MG-  / INTRAVENOUS (NOT OTHERWISE SPECIFIED
     Route: 042
  6. CIMETIDINE [Suspect]
     Indication: PRODUCT USED FOR UNKNOWN INDICATION
     Dosage: 300.00-MG-/ INTRAVENOUS (NOT OTHERWISE SPECIFIED)
     Route: 042
  7. CITALOPRAM HYDROBROMIDE [Suspect]
     Indication: PRODUCT USED FOR UNKNOWN INDICATION
     Dosage: 10.00-MG-
  8. ALPRAZOLAM [Suspect]
     Indication: PRODUCT USED FOR UNKNOWN INDICATION
     Dosage: 5.00-MG-2.00 TIMES PER-1.0DAYS
  9. OXYCODONE HCL [Suspect]
     Indication: PAIN
     Dosage: 5.00-MG-
  10. ERLOTINIB HYDROCHLORIDE [Suspect]
     Indication: PRODUCT USED FOR UNKNOWN INDICATION
     Dosage: 150.00-MG-1.0DAYS / ORAL
     Route: 048
  11. PACLITAXEL [Suspect]
     Indication: PRODUCT USED FOR UNKNOWN INDICATION
     Dosage: 130.00-MG- / INTRAVENOUS (NOT OTHERWISE SPECIFIED
     Route: 042
  12. BEVACIZUMAB(BEVACIZ UMAB) [Suspect]
     Indication: PRODUCT USED FOR UNKNOWN INDICATION
     Dosage: 1497.00-MG-1.0DAYS
  13. DEXAMETHASONE [Suspect]
     Indication: PRODUCT USED FOR UNKNOWN INDICATION
     Dosage: 20.00-MG-/ INTRAVENOUS (NOT OTHERWISE SPECIFIED)
     Route: 042
  14. DIPHENHYDRAMINE HCL [Suspect]
     Indication: PRODUCT USED FOR UNKNOWN INDICATION
     Dosage: 25.00-MG-/ INTRAVENOUS (NOT OTHERWISE SPECIFIED)
     Route: 042
  15. VITAMIN K TAB [Suspect]
     Indication: PRODUCT USED FOR UNKNOWN INDICATION

REACTIONS (9)
  - DRUG INTERACTION [None]
  - CONTUSION [None]
  - RASH [None]
  - SWELLING [None]
  - SUBCLAVIAN VEIN THROMBOSIS [None]
  - HAEMATOMA [None]
  - INTERNATIONAL NORMALISED RATIO INCREASED [None]
  - WEIGHT DECREASED [None]
  - DIARRHOEA [None]
